FAERS Safety Report 8880095 (Version 4)
Quarter: 2013Q2

REPORT INFORMATION
  Report Type: Spontaneous
  Country: BR (occurrence: BR)
  Receive Date: 20121031
  Receipt Date: 20130607
  Transmission Date: 20140414
  Serious: Yes (Hospitalization, Other)
  Sender: FDA-Public Use
  Company Number: BR-ABBOTT-12P-020-1000046-00

PATIENT
  Age: 46 Year
  Sex: Male

DRUGS (1)
  1. HUMIRA [Suspect]
     Indication: PSORIASIS
     Dates: start: 201110

REACTIONS (6)
  - Pyrexia [Recovered/Resolved]
  - Weight decreased [Unknown]
  - Pneumonia [Unknown]
  - Tuberculosis of intrathoracic lymph nodes [Recovered/Resolved]
  - Tuberculosis of central nervous system [Recovered/Resolved]
  - Visual impairment [Unknown]
